FAERS Safety Report 12493931 (Version 1)
Quarter: 2016Q2

REPORT INFORMATION
  Report Type: Report from Study
  Country: BE (occurrence: BE)
  Receive Date: 20160623
  Receipt Date: 20160623
  Transmission Date: 20160815
  Serious: Yes (Death)
  Sender: FDA-Public Use
  Company Number: BE-ABBVIE-13P-013-1168267-00

PATIENT
  Sex: Male

DRUGS (10)
  1. DUODOPA [Suspect]
     Active Substance: CARBIDOPA\LEVODOPA
     Dosage: DOSAGE WAS INCREASED
     Route: 050
     Dates: start: 20160217
  2. DUODOPA [Suspect]
     Active Substance: CARBIDOPA\LEVODOPA
     Dosage: AM DOSE=2ML, CD=2.5ML/H FOR 16HRS AND ED=2ML
     Route: 050
     Dates: start: 20130711, end: 20131104
  3. DUODOPA [Suspect]
     Active Substance: CARBIDOPA\LEVODOPA
     Dosage: AM DOSE=2ML, CD=2.4ML/H FOR 16HRS AND ED=2ML
     Route: 050
     Dates: start: 20131104, end: 20140813
  4. DUODOPA [Suspect]
     Active Substance: CARBIDOPA\LEVODOPA
     Dosage: AM = 2 ML, CD = 2.2 ML/H DURING 16H, ED = 2 ML
     Route: 050
     Dates: start: 20140813, end: 20141126
  5. DUODOPA [Suspect]
     Active Substance: CARBIDOPA\LEVODOPA
     Dosage: DOSAGE CONTINUOUSLY MONITORED AND ADJUSTED
     Route: 050
     Dates: start: 20121018, end: 20130711
  6. DUODOPA [Suspect]
     Active Substance: CARBIDOPA\LEVODOPA
     Route: 050
     Dates: start: 20150213, end: 20150602
  7. DUODOPA [Suspect]
     Active Substance: CARBIDOPA\LEVODOPA
     Dosage: AM=2 ML, CD=2.2 ML/H DURING 16H, ED=3 ML
     Route: 050
     Dates: start: 20150602, end: 20151208
  8. DUODOPA [Suspect]
     Active Substance: CARBIDOPA\LEVODOPA
     Dosage: AM DOSE= 2ML, CONTIN DOSE= 2.2ML/H DURING 16HRS, EXTRA DOSE= 2.5 ML
     Route: 050
     Dates: start: 20141126
  9. DUODOPA [Suspect]
     Active Substance: CARBIDOPA\LEVODOPA
     Dosage: AM=2ML; CD=2.1ML/H FOR 16HRS; ED=2ML
     Route: 050
     Dates: start: 20151208, end: 20160217
  10. DUODOPA [Suspect]
     Active Substance: CARBIDOPA\LEVODOPA
     Indication: PARKINSON^S DISEASE
     Dosage: AM DOSE=4.5ML, CD=2ML/H FOR 16HRS AND ED=0.9ML
     Route: 050
     Dates: start: 20121016, end: 20121018

REACTIONS (4)
  - Tremor [Not Recovered/Not Resolved]
  - Drug effect variable [Unknown]
  - Dyskinesia [Not Recovered/Not Resolved]
  - Sudden death [Fatal]
